FAERS Safety Report 4371905-5 (Version None)
Quarter: 2004Q2

REPORT INFORMATION
  Report Type: 
  Country: None (occurrence: None)
  Receive Date: 20040602
  Receipt Date: 20040518
  Transmission Date: 20050107
  Serious: No
  Sender: FDA-Public Use
  Company Number: 04H-163-0261863-00

PATIENT
  Age: 70 Year
  Sex: Male

DRUGS (2)
  1. HEPARIN SODIUM [Suspect]
     Indication: ANTICOAGULANT THERAPY
     Dosage: ONCE, INTRAVENOUS
     Route: 042
  2. APROTININ [Concomitant]

REACTIONS (6)
  - ANTIBODY TEST POSITIVE [None]
  - BLOOD PRESSURE SYSTOLIC DECREASED [None]
  - HEART TRANSPLANT [None]
  - HEPARIN-INDUCED THROMBOCYTOPENIA [None]
  - MEDICATION ERROR [None]
  - VENTRICULAR TACHYCARDIA [None]
